FAERS Safety Report 8543556-X (Version None)
Quarter: 2012Q2

REPORT INFORMATION
  Report Type: 
  Country: None (occurrence: None)
  Receive Date: 20120412
  Receipt Date: 20090513
  Transmission Date: 20120825
  Serious: Yes (Other)
  Sender: FDA-Public Use
  Company Number: PHEH2007US05476

PATIENT
  Age: 52 Year
  Sex: Female

DRUGS (12)
  1. AREDIA [Suspect]
  2. ZOMETA [Suspect]
  3. LIPITOR [Concomitant]
  4. BISOPROLOL FUMARATE W/HYDROCHLOROTHIAZIDE (BISOPROLOL FUMARATE, HYDROC [Concomitant]
  5. PENICILLIN-VK [Concomitant]
  6. FEMARA [Concomitant]
  7. GABAPETNIN (GABAPENTIN) [Concomitant]
  8. NIFEDICAL (NIFEDIPINE) [Concomitant]
  9. METRONIDAZOLE [Concomitant]
  10. HYDROCODONE BITARTRATE + ACETAMINOPHEN [Concomitant]
  11. NIFEDIAC CC (NIFEDIPINE) [Concomitant]
  12. PAROXETINE HCL [Concomitant]

REACTIONS (13)
  - ANAEMIA [None]
  - SEQUESTRECTOMY [None]
  - EXOSTOSIS [None]
  - TOOTH EXTRACTION [None]
  - ANXIETY [None]
  - INJURY [None]
  - BONE OPERATION [None]
  - PAIN [None]
  - OSTEONECROSIS [None]
  - PYREXIA [None]
  - HYPERAESTHESIA [None]
  - SWELLING FACE [None]
  - SOFT TISSUE DISORDER [None]
